FAERS Safety Report 4510559-1 (Version None)
Quarter: 2004Q4

REPORT INFORMATION
  Report Type: 
  Country: None (occurrence: None)
  Receive Date: 20041122
  Receipt Date: 20041104
  Transmission Date: 20050328
  Serious: Yes (Death, Life-Threatening, Hospitalization)
  Sender: FDA-Public Use
  Company Number: ATO-01-0100

PATIENT
  Age: 59 Year
  Sex: Male
  Weight: 97.4 kg

DRUGS (1)
  1. TRISENOX [Suspect]
     Indication: MYELODYSPLASTIC SYNDROME
     Dosage: 24 MG (0.25 MG/KG, 5/WEEK), IVI
     Route: 042
     Dates: start: 20010730, end: 20010810

REACTIONS (11)
  - ACUTE MYELOID LEUKAEMIA [None]
  - ACUTE RESPIRATORY DISTRESS SYNDROME [None]
  - FEBRILE NEUTROPENIA [None]
  - GASTROINTESTINAL HAEMORRHAGE [None]
  - HAEMATOCHEZIA [None]
  - NEUTROPENIA [None]
  - PNEUMONIA [None]
  - PULMONARY OEDEMA [None]
  - RASH PUSTULAR [None]
  - RENAL FAILURE ACUTE [None]
  - RESPIRATORY FAILURE [None]
